FAERS Safety Report 24171482 (Version 1)
Quarter: 2024Q3

REPORT INFORMATION
  Report Type: Spontaneous
  Country: US (occurrence: US)
  Receive Date: 20240805
  Receipt Date: 20240805
  Transmission Date: 20241016
  Serious: No
  Sender: SANOFI AVENTIS
  Company Number: US-SA-SAC20240730000815

PATIENT
  Sex: Male
  Weight: 85.27 kg

DRUGS (4)
  1. DUPIXENT [Suspect]
     Active Substance: DUPILUMAB
     Indication: Dermatitis atopic
     Dosage: 300 MG, QOW
     Route: 058
  2. GABAPENTIN [Suspect]
     Active Substance: GABAPENTIN
     Indication: Back injury
     Dosage: 300 MG, BID
     Route: 065
  3. BACLOFEN [Concomitant]
     Active Substance: BACLOFEN
  4. ELIQUIS [Concomitant]
     Active Substance: APIXABAN

REACTIONS (5)
  - Back injury [Unknown]
  - Chest pain [Unknown]
  - Feeling abnormal [Unknown]
  - Pain [Unknown]
  - Mobility decreased [Unknown]
